FAERS Safety Report 8239486-3 (Version None)
Quarter: 2012Q1

REPORT INFORMATION
  Report Type: 
  Country: None (occurrence: None)
  Receive Date: 20120328
  Receipt Date: 20120326
  Transmission Date: 20120608
  Serious: No
  Sender: FDA-Public Use
  Company Number: US-PFIZER INC-2012077358

PATIENT
  Sex: Male
  Weight: 68.027 kg

DRUGS (1)
  1. VIAGRA [Suspect]
     Indication: MICROPENIS
     Dosage: 100 MG, UNK
     Route: 048
     Dates: start: 20120301

REACTIONS (1)
  - PENILE CURVATURE [None]
